FAERS Safety Report 5939784-X (Version None)
Quarter: 2008Q4

REPORT INFORMATION
  Report Type: 
  Country: None (occurrence: None)
  Receive Date: 20081030
  Receipt Date: 20081030
  Transmission Date: 20090506
  Serious: Yes (Other)
  Sender: FDA-Public Use
  Company Number: None

PATIENT
  Sex: Female
  Weight: 77.5651 kg

DRUGS (2)
  1. LESCOL [Suspect]
     Indication: HYPERLIPIDAEMIA
     Dosage: 20MG DAILY P.O.
     Route: 048
     Dates: start: 20071105, end: 20071205
  2. SIMVASTATIN [Suspect]
     Indication: HYPERLIPIDAEMIA
     Dosage: 40MG BEDTIME P.O.
     Route: 048
     Dates: start: 20070918, end: 20071105

REACTIONS (2)
  - HEADACHE [None]
  - MYALGIA [None]
